FAERS Safety Report 10016235 (Version 1)
Quarter: 2014Q1

REPORT INFORMATION
  Report Type: Spontaneous
  Country: DE (occurrence: DE)
  Receive Date: 20140317
  Receipt Date: 20140317
  Transmission Date: 20141002
  Serious: Yes (Congenital Anomaly, Other)
  Sender: FDA-Public Use
  Company Number: DE-MYLANLABS-2014S1005057

PATIENT
  Age: 1 Day
  Sex: Female
  Weight: 2.59 kg

DRUGS (4)
  1. CENTRUM MATERNA [Concomitant]
     Indication: PROPHYLAXIS OF NEURAL TUBE DEFECT
     Dosage: 0.4 [MG/D ]
     Route: 064
  2. AZATHIOPRINE [Suspect]
     Indication: CROHN^S DISEASE
     Dosage: 125 [MG/D ]
     Route: 064
     Dates: start: 20120909, end: 20130725
  3. REMICADE [Suspect]
     Indication: CROHN^S DISEASE
     Dosage: 300 [MG/INJ (ALLE 6 WOCHEN) ]
     Route: 064
  4. PREDNISOLONE [Concomitant]
     Indication: CROHN^S DISEASE
     Dosage: 5 [MG/2D ]
     Route: 064
     Dates: start: 20121108, end: 20121125

REACTIONS (5)
  - Atrial septal defect [Not Recovered/Not Resolved]
  - Patent ductus arteriosus [Recovered/Resolved]
  - Neonatal respiratory distress syndrome [Recovered/Resolved]
  - Neonatal pneumonia [Recovered/Resolved]
  - Exposure during pregnancy [Recovered/Resolved]
